FAERS Safety Report 4809209-6 (Version None)
Quarter: 2005Q4

REPORT INFORMATION
  Report Type: 
  Country: None (occurrence: None)
  Receive Date: 20051021
  Receipt Date: 20051004
  Transmission Date: 20060501
  Serious: Yes (Other)
  Sender: FDA-Public Use
  Company Number: PAR_0372_2005

PATIENT
  Age: 12 Month
  Weight: 9.8 kg

DRUGS (1)
  1. IBUPROFEN [Suspect]
     Indication: VARICELLA
     Dosage: DF VARIABLE PO
     Route: 048

REACTIONS (1)
  - STREPTOCOCCAL INFECTION [None]
